FAERS Safety Report 6324181-8 (Version None)
Quarter: 2009Q3

REPORT INFORMATION
  Report Type: 
  Country: None (occurrence: None)
  Receive Date: 20090824
  Receipt Date: 20090518
  Transmission Date: 20100115
  Serious: No
  Sender: FDA-Public Use
  Company Number: US-ABBOTT-09P-163-0574055-00

PATIENT
  Sex: Female
  Weight: 83.99 kg

DRUGS (8)
  1. NIASPAN [Suspect]
     Indication: LOW DENSITY LIPOPROTEIN INCREASED
     Dates: start: 20090417, end: 20090515
  2. JANUMET [Concomitant]
     Indication: DRUG USE FOR UNKNOWN INDICATION
  3. MANY VITAMINS IN VITAMINS REGRIME [Concomitant]
     Indication: DRUG USE FOR UNKNOWN INDICATION
  4. AMEPROZOLE [Concomitant]
     Indication: DRUG USE FOR UNKNOWN INDICATION
  5. TRAZODONE HCL [Concomitant]
     Indication: SLEEP DISORDER THERAPY
  6. RAMIPRIL [Concomitant]
     Indication: DRUG USE FOR UNKNOWN INDICATION
  7. EYE DROPS [Concomitant]
     Indication: DIABETIC EYE DISEASE
  8. LEXAPRO [Concomitant]
     Indication: DRUG USE FOR UNKNOWN INDICATION

REACTIONS (8)
  - ASTHENIA [None]
  - BLOOD GLUCOSE FLUCTUATION [None]
  - GASTRIC DISORDER [None]
  - INFLUENZA [None]
  - LETHARGY [None]
  - MALAISE [None]
  - MUSCLE SPASMS [None]
  - NASOPHARYNGITIS [None]
